FAERS Safety Report 5297326-9 (Version None)
Quarter: 2007Q2

REPORT INFORMATION
  Report Type: 
  Country: None (occurrence: None)
  Receive Date: 20070410
  Receipt Date: 20070410
  Transmission Date: 20071010
  Serious: No
  Sender: FDA-Public Use
  Company Number: None

PATIENT

DRUGS (3)
  1. BAYER EXTRA STRENGTH BACK + BODY ASPIRIN [Suspect]
     Dosage: TABLET
  2. BAYER REGULAR STRENGTH [Suspect]
     Dosage: TABLET
  3. ASPERCREME [Suspect]
     Dosage: CREAM  TUBE

REACTIONS (7)
  - CARDIAC ARREST [None]
  - DEPRESSED LEVEL OF CONSCIOUSNESS [None]
  - DRUG DISPENSING ERROR [None]
  - DRUG TOXICITY [None]
  - DYSPNOEA [None]
  - MEDICATION ERROR [None]
  - RENAL FAILURE [None]
